FAERS Safety Report 9937825 (Version 1)
Quarter: 2014Q1

REPORT INFORMATION
  Report Type: Spontaneous
  Country: US (occurrence: US)
  Receive Date: 20140303
  Receipt Date: 20140303
  Transmission Date: 20141002
  Serious: No
  Sender: FDA-Public Use
  Company Number: US-BIOGENIDEC-2014BI016250

PATIENT
  Age: 44 Year
  Sex: Male

DRUGS (6)
  1. TECFIDERA [Suspect]
     Indication: MULTIPLE SCLEROSIS
     Route: 048
     Dates: start: 20140106, end: 20140112
  2. TECFIDERA [Suspect]
     Indication: MULTIPLE SCLEROSIS
     Route: 048
     Dates: start: 20140113, end: 20140126
  3. GABAPENTIN [Concomitant]
  4. SENOKOT [Concomitant]
  5. KEPPRA [Concomitant]
  6. BACLOFEN [Concomitant]

REACTIONS (2)
  - Decreased appetite [Unknown]
  - Nausea [Unknown]
